FAERS Safety Report 8965329 (Version 1)
Quarter: 2012Q4

REPORT INFORMATION
  Report Type: 
  Country: US (occurrence: US)
  Receive Date: 20121213
  Receipt Date: 20121213
  Transmission Date: 20130627
  Serious: Yes (Hospitalization)
  Sender: FDA-Public Use
  Company Number: PHHO2012US017659

PATIENT
  Age: 68 Year
  Sex: Male
  Weight: 62.6 kg

DRUGS (14)
  1. LDE 225 [Suspect]
     Indication: PANCREATIC CARCINOMA METASTATIC
     Dosage: 400 mg, UNK
     Route: 048
     Dates: start: 20121030, end: 20121204
  2. FLUOROURACIL [Suspect]
     Indication: PANCREATIC CARCINOMA METASTATIC
     Dosage: 1000 mg/m2, UNK
     Route: 042
     Dates: start: 20121030, end: 20121127
  3. IRINOTECAN [Suspect]
     Indication: PANCREATIC CARCINOMA METASTATIC
     Dosage: 120 mg/m2, UNK
     Route: 042
     Dates: start: 20121030, end: 20121127
  4. OXALIPLATIN [Suspect]
     Indication: PANCREATIC CARCINOMA METASTATIC
     Dosage: 65 mg/m2, UNK
     Route: 042
     Dates: start: 20121030, end: 20121127
  5. LEUCOVORIN [Suspect]
     Indication: PANCREATIC CARCINOMA METASTATIC
     Dosage: 400 mg/m2, UNK
     Route: 042
     Dates: start: 20121030, end: 20121127
  6. BETASERON [Concomitant]
  7. COMPAZINE [Concomitant]
  8. DEXAMETHASONE [Concomitant]
  9. EMEND [Concomitant]
  10. GABAPENTIN [Concomitant]
  11. LISINOPRIL [Concomitant]
  12. LORAZEPAM [Concomitant]
  13. OMEPRAZOLE [Concomitant]
  14. ONDANSETRON HCL [Concomitant]

REACTIONS (3)
  - Nausea [Not Recovered/Not Resolved]
  - Asthenia [Not Recovered/Not Resolved]
  - Blood creatine phosphokinase increased [Not Recovered/Not Resolved]
